FAERS Safety Report 7400190-2 (Version None)
Quarter: 2011Q2

REPORT INFORMATION
  Report Type: 
  Country: None (occurrence: None)
  Receive Date: 20110405
  Receipt Date: 20110405
  Transmission Date: 20111010
  Serious: Yes (Other)
  Sender: FDA-Public Use
  Company Number: None

PATIENT
  Sex: Female
  Weight: 56.6996 kg

DRUGS (2)
  1. BUPROPION HYDROCHLORIDE (WELLBUTRIN XL) [Suspect]
     Indication: DEPRESSION
     Dosage: 300 MGM ONCE EACH AM PO
     Route: 048
     Dates: start: 20101105, end: 20110310
  2. BUPROPION HYDROCHLORIDE (WELLBUTRIN XL) [Suspect]
     Indication: BIPOLAR DISORDER
     Dosage: 300 MGM ONCE EACH AM PO
     Route: 048
     Dates: start: 20101105, end: 20110310

REACTIONS (4)
  - CONDITION AGGRAVATED [None]
  - DEPRESSIVE SYMPTOM [None]
  - DRUG EFFECT DECREASED [None]
  - PRODUCT SUBSTITUTION ISSUE [None]
